FAERS Safety Report 16171032 (Version 4)
Quarter: 2019Q2

REPORT INFORMATION
  Report Type: Report from Study
  Country: US (occurrence: US)
  Receive Date: 20190408
  Receipt Date: 20190613
  Transmission Date: 20190711
  Serious: Yes (Hospitalization)
  Sender: FDA-Public Use
  Company Number: US-ACTELION-A-NJ2019-188738

PATIENT
  Sex: Male
  Weight: 111.11 kg

DRUGS (2)
  1. OPSUMIT [Suspect]
     Active Substance: MACITENTAN
     Indication: PULMONARY ARTERIAL HYPERTENSION
     Dosage: 10 MG, QD
     Route: 048
     Dates: start: 20181031
  2. UPTRAVI [Suspect]
     Active Substance: SELEXIPAG
     Indication: PULMONARY ARTERIAL HYPERTENSION
     Dosage: 1400 MCG, BID
     Route: 048

REACTIONS (10)
  - Fall [Unknown]
  - Arthralgia [Unknown]
  - Nausea [Unknown]
  - Adverse event [Not Recovered/Not Resolved]
  - Oxygen saturation decreased [Unknown]
  - Fluid overload [Unknown]
  - Cyanosis [Unknown]
  - Myalgia [Unknown]
  - Syncope [Unknown]
  - Fluid retention [Unknown]
